FAERS Safety Report 4399912-7 (Version None)
Quarter: 2004Q3

REPORT INFORMATION
  Report Type: 
  Country: None (occurrence: None)
  Receive Date: 20040716
  Receipt Date: 20040629
  Transmission Date: 20050211
  Serious: Yes (Death, Other)
  Sender: FDA-Public Use
  Company Number: EWC040739844

PATIENT
  Age: 31 Year
  Sex: Male

DRUGS (4)
  1. OLANZAPINE [Suspect]
     Indication: MANIA
     Dosage: 15 MG DAY
     Dates: start: 20031120
  2. LITHIUM CARBONATE [Concomitant]
  3. FLURAZEPAM [Concomitant]
  4. RIVOTRIL (CLONAZEPAM) [Concomitant]

REACTIONS (8)
  - BIPOLAR I DISORDER [None]
  - DRUG ABUSER [None]
  - ELECTROCARDIOGRAM ST SEGMENT ELEVATION [None]
  - MANIA [None]
  - MYOCARDIAL INFARCTION [None]
  - NAUSEA [None]
  - TREATMENT NONCOMPLIANCE [None]
  - VOMITING [None]
